FAERS Safety Report 10067339 (Version 2)
Quarter: 2014Q2

REPORT INFORMATION
  Report Type: Spontaneous
  Country: GB (occurrence: GB)
  Receive Date: 20140409
  Receipt Date: 20140412
  Transmission Date: 20141212
  Serious: Yes (Death)
  Sender: FDA-Public Use
  Company Number: GB-MERCK-1404GBR004398

PATIENT
  Sex: 0

DRUGS (2)
  1. ISENTRESS [Suspect]
     Dosage: UNK
     Route: 048
  2. TRUVADA [Suspect]
     Dosage: UNK
     Route: 048

REACTIONS (1)
  - Death [Fatal]
